FAERS Safety Report 5453994-X (Version None)
Quarter: 2007Q3

REPORT INFORMATION
  Report Type: 
  Country: None (occurrence: None)
  Receive Date: 20070917
  Receipt Date: 20070913
  Transmission Date: 20080115
  Serious: Yes (Death, Life-Threatening, Hospitalization, Other)
  Sender: FDA-Public Use
  Company Number: HQWYE974515DEC04

PATIENT
  Sex: Female
  Weight: 49.5 kg

DRUGS (4)
  1. RAPAMUNE [Suspect]
     Indication: PROPHYLAXIS AGAINST TRANSPLANT REJECTION
     Dosage: VARIED DOSE OF 2 TO 5 MG
     Route: 048
     Dates: start: 20041104, end: 20041130
  2. MYCOPHENOLATE MOFETIL [Suspect]
     Indication: PROPHYLAXIS AGAINST TRANSPLANT REJECTION
     Dosage: UNSPECIFIED
     Route: 048
  3. CORTICOSTEROID NOS [Suspect]
     Indication: PROPHYLAXIS AGAINST TRANSPLANT REJECTION
     Dosage: UNSPECIFIED
     Route: 045
  4. ZENAPAX [Suspect]
     Indication: PROPHYLAXIS AGAINST TRANSPLANT REJECTION
     Dosage: UNSPECIFIED
     Route: 045

REACTIONS (4)
  - BRONCHOPNEUMONIA [None]
  - CANDIDA SEPSIS [None]
  - MICROANGIOPATHIC HAEMOLYTIC ANAEMIA [None]
  - MULTI-ORGAN FAILURE [None]
